FAERS Safety Report 22103302 (Version 1)
Quarter: 2023Q1

REPORT INFORMATION
  Report Type: Spontaneous
  Country: US (occurrence: None)
  Receive Date: 20230315
  Receipt Date: 20230315
  Transmission Date: 20230418
  Serious: Yes (Hospitalization, Disabling, Other)
  Sender: FDA-Public Use
  Company Number: None

PATIENT
  Age: 64 Year
  Sex: Female
  Weight: 81.45 kg

DRUGS (1)
  1. OZEMPIC [Suspect]
     Active Substance: SEMAGLUTIDE
     Dates: start: 20201101, end: 20230216

REACTIONS (5)
  - Cholelithiasis [None]
  - Electrolyte imbalance [None]
  - Dehydration [None]
  - Catheter site pain [None]
  - Cholecystitis infective [None]

NARRATIVE: CASE EVENT DATE: 20230224
